FAERS Safety Report 11656167 (Version 2)
Quarter: 2015Q4

REPORT INFORMATION
  Report Type: Spontaneous
  Country: US (occurrence: US)
  Receive Date: 20151023
  Receipt Date: 20151105
  Transmission Date: 20160304
  Serious: Yes (Other)
  Sender: FDA-Public Use
  Company Number: US-009507513-1510USA007602

PATIENT
  Age: 50 Year
  Sex: Male

DRUGS (18)
  1. ECOTRIN [Concomitant]
     Active Substance: ASPIRIN
     Dosage: 325 MG, 1 IN 1 D (QD)
     Route: 048
     Dates: start: 20130628
  2. CYANOCOBALAMIN. [Concomitant]
     Active Substance: CYANOCOBALAMIN
     Dosage: UNK, 1 IN 1 D (QD)
     Route: 048
  3. PEGASYS [Suspect]
     Active Substance: PEGINTERFERON ALFA-2A
     Indication: CRYOGLOBULINAEMIA
     Dosage: 180 MICROGRAM, 1 IN 1 WK (QW)
     Route: 058
     Dates: start: 20100827
  4. LISINOPRIL (+) HYDROCHLOROTHIAZIDE [Concomitant]
     Active Substance: HYDROCHLOROTHIAZIDE\LISINOPRIL
     Indication: HYPERTENSION
     Dosage: 20 TO 12.5 MG, 1 IN 1 D (QD)
     Route: 048
  5. DOCUSATE CALCIUM. [Concomitant]
     Active Substance: DOCUSATE CALCIUM
     Dosage: UNK
     Route: 048
  6. PEGASYS [Suspect]
     Active Substance: PEGINTERFERON ALFA-2A
     Indication: CHRONIC HEPATITIS C
     Dosage: 180 MICROGRAM, 1 IN 1 WK (QW)
     Route: 058
  7. COPEGUS [Suspect]
     Active Substance: RIBAVIRIN
     Indication: CHRONIC HEPATITIS C
     Dosage: SIG: 400 MG QAM AND 600 MG QPM (200 MG)
     Route: 048
  8. COPEGUS [Suspect]
     Active Substance: RIBAVIRIN
     Dosage: BID (22 MG, 3 IN 12 D)
     Route: 065
  9. GABAPENTIN. [Concomitant]
     Active Substance: GABAPENTIN
     Indication: GASTROINTESTINAL PAIN
     Dosage: TAKE 2 TABS BY MOUTH 3X DAILY- 180 TAB (600 MG, 2 IN 8 HR)
     Route: 048
  10. METAMUCIL [Concomitant]
     Active Substance: PLANTAGO SEED
     Dosage: UNK, AS NEEDED (PRN)
     Route: 048
  11. COPEGUS [Suspect]
     Active Substance: RIBAVIRIN
     Indication: VASCULITIS
     Dosage: BID, SIG: 400MG QAM AND 600 MG QPM (3 IN 12 D)
     Route: 065
     Dates: start: 201104
  12. COPEGUS [Suspect]
     Active Substance: RIBAVIRIN
     Dosage: BID (600 MG, 2 IN 1 D)
     Route: 048
  13. VICTRELIS [Suspect]
     Active Substance: BOCEPREVIR
     Indication: PRODUCT USED FOR UNKNOWN INDICATION
     Dosage: UNK
     Route: 065
     Dates: start: 20110416, end: 20111011
  14. PEGASYS [Suspect]
     Active Substance: PEGINTERFERON ALFA-2A
     Dosage: 180 MICROGRAM, 1 IN 1 WK (QW)
     Route: 058
     Dates: start: 201104
  15. PEGASYS [Suspect]
     Active Substance: PEGINTERFERON ALFA-2A
     Indication: VASCULITIS
     Dosage: REDUCED DOSE, 1 IN 1 WK (QW)
     Route: 058
     Dates: start: 201012, end: 201101
  16. NEXIUM [Concomitant]
     Active Substance: ESOMEPRAZOLE MAGNESIUM
     Dosage: UNK
     Route: 065
  17. COPEGUS [Suspect]
     Active Substance: RIBAVIRIN
     Indication: CRYOGLOBULINAEMIA
     Dosage: BID, SIG: 400MG QAM AND 600 MG QPM (3 IN 12 D)
     Route: 065
     Dates: start: 20100827
  18. NAPROSYN [Suspect]
     Active Substance: NAPROXEN
     Indication: PRODUCT USED FOR UNKNOWN INDICATION
     Dosage: UNK
     Route: 065
     Dates: end: 20130628

REACTIONS (28)
  - Neurodermatitis [Unknown]
  - Fibrosis [Unknown]
  - Cryoglobulinaemia [Unknown]
  - Hepatic neoplasm [Unknown]
  - Arthralgia [Unknown]
  - Alanine aminotransferase increased [Unknown]
  - Testicular pain [Unknown]
  - Pain in extremity [Unknown]
  - Decreased activity [Unknown]
  - Drug ineffective [Unknown]
  - Chronic hepatitis C [Unknown]
  - Dyspepsia [Unknown]
  - Hypoaesthesia [Unknown]
  - Aspartate aminotransferase increased [Unknown]
  - Pain [Unknown]
  - Hypertension [Unknown]
  - Folliculitis [Unknown]
  - Oedema [Unknown]
  - Skin papilloma [Unknown]
  - Umbilical hernia [Unknown]
  - Neuropathy peripheral [Unknown]
  - Anogenital warts [Unknown]
  - Peripheral sensorimotor neuropathy [Unknown]
  - Skin ulcer [Unknown]
  - Mood altered [Unknown]
  - Gamma-glutamyltransferase increased [Unknown]
  - Blood alkaline phosphatase increased [Unknown]
  - Weight decreased [Unknown]

NARRATIVE: CASE EVENT DATE: 20120911
